FAERS Safety Report 7517181-3 (Version None)
Quarter: 2011Q2

REPORT INFORMATION
  Report Type: 
  Country: None (occurrence: None)
  Receive Date: 20110601
  Receipt Date: 20110525
  Transmission Date: 20111010
  Serious: Yes (Death, Hospitalization)
  Sender: FDA-Public Use
  Company Number: MX-SANOFI-AVENTIS-2011SA033031

PATIENT
  Age: 74 Year
  Sex: Female

DRUGS (2)
  1. INSULIN GLARGINE [Suspect]
     Indication: TYPE 2 DIABETES MELLITUS
     Dates: start: 20060101, end: 20110401
  2. INSULIN [Concomitant]

REACTIONS (6)
  - ANAEMIA [None]
  - HYPERGLYCAEMIA [None]
  - ELECTROLYTE IMBALANCE [None]
  - RENAL FAILURE CHRONIC [None]
  - DIABETIC FOOT [None]
  - OLIGURIA [None]
